FAERS Safety Report 20756531 (Version 1)
Quarter: 2022Q2

REPORT INFORMATION
  Report Type: Spontaneous
  Country: NL (occurrence: None)
  Receive Date: 20220427
  Receipt Date: 20220427
  Transmission Date: 20220721
  Serious: Yes (Other)
  Sender: FDA-Public Use
  Company Number: 2009AC00443

PATIENT
  Age: 25604 Day
  Sex: Male
  Weight: 85 kg

DRUGS (8)
  1. CRESTOR [Interacting]
     Active Substance: ROSUVASTATIN CALCIUM
     Indication: Hypercholesterolaemia
     Route: 048
     Dates: start: 20070112
  2. OFLOXACIN [Interacting]
     Active Substance: OFLOXACIN
     Indication: Prostatitis
     Route: 048
     Dates: start: 20081117, end: 20081120
  3. OMEPRAZOLE [Concomitant]
     Active Substance: OMEPRAZOLE
     Dosage: 20 MG
     Route: 048
     Dates: start: 20070112
  4. METOPROLOL SUCCINATE [Concomitant]
     Active Substance: METOPROLOL SUCCINATE
     Route: 048
     Dates: start: 20070112
  5. RAMIPRIL [Concomitant]
     Active Substance: RAMIPRIL
     Route: 048
     Dates: start: 20070112
  6. LERDIP [Concomitant]
     Route: 048
     Dates: start: 20070112
  7. HYDROCHLOROTHIAZIDE\VALSARTAN [Concomitant]
     Active Substance: HYDROCHLOROTHIAZIDE\VALSARTAN
     Dosage: 160/25, 5 MG
     Route: 048
  8. OCULOTECT [Concomitant]
     Dosage: 50 MG/ML
     Route: 047

REACTIONS (2)
  - Drug interaction [Recovered/Resolved]
  - Muscle rupture [Unknown]

NARRATIVE: CASE EVENT DATE: 20081120
